FAERS Safety Report 16849619 (Version 1)
Quarter: 2019Q4

REPORT INFORMATION
  Report Type: Spontaneous
  Country: US (occurrence: US)
  Receive Date: 20190925
  Receipt Date: 20190925
  Transmission Date: 20200122
  Serious: Yes (Hospitalization, Other)
  Sender: FDA-Public Use
  Company Number: None

PATIENT
  Age: 85 Year
  Sex: Female
  Weight: 93.4 kg

DRUGS (9)
  1. PROTHROMBIN COMPLEX CONCENTRATE NOS [Suspect]
     Active Substance: COAGULATION FACTOR IX HUMAN\COAGULATION FACTOR VII HUMAN\COAGULATION FACTOR X HUMAN\PROTHROMBIN
     Indication: HAEMORRHAGE PROPHYLAXIS
     Dosage: ?          OTHER FREQUENCY:ONCE;?
     Dates: start: 20190603, end: 20190603
  2. FAMOTIDINE 20 MG DAILY [Concomitant]
     Dates: start: 20190604, end: 20190610
  3. LEVETIRACETAM 500 MG DAILY [Concomitant]
     Dates: start: 20190604
  4. ZOSYN 3.375 G EVERY 12 HOURS [Concomitant]
     Dates: start: 20190604, end: 20190611
  5. ALBUMIN HUMAN 25% [Concomitant]
     Active Substance: ALBUMIN HUMAN
     Dates: start: 20190604, end: 20190605
  6. HEPARIN 5,000 UNITS THREE TIMES DAILY [Concomitant]
     Dates: start: 20190604, end: 20190604
  7. THIAMINE IV 100 MG [Concomitant]
     Dates: start: 20190604, end: 20190610
  8. PHYTONADIONE. [Suspect]
     Active Substance: PHYTONADIONE
     Indication: PROPHYLAXIS
     Dosage: ?          OTHER FREQUENCY:ONCE;?
     Dates: start: 20190603, end: 20190603
  9. METOPROLOL IV 5 MG EVERY 6 HOURS [Concomitant]
     Dates: start: 20190604, end: 20190607

REACTIONS (2)
  - Cerebrovascular accident [None]
  - Cardiovascular disorder [None]

NARRATIVE: CASE EVENT DATE: 20190604
